FAERS Safety Report 5141175-9 (Version None)
Quarter: 2006Q4

REPORT INFORMATION
  Report Type: 
  Country: None (occurrence: None)
  Receive Date: 20061026
  Receipt Date: 20061013
  Transmission Date: 20070319
  Serious: Yes (Death)
  Sender: FDA-Public Use
  Company Number: 230440

PATIENT
  Age: 60 Year
  Sex: Female
  Weight: 44 kg

DRUGS (10)
  1. RITUXIMAB (RITUXIMAB) CONC FOR SOLUTION FOR INFUSION [Suspect]
     Indication: CHRONIC LYMPHOCYTIC LEUKAEMIA
     Dosage: 900 MG, Q4W, INTRAVENOUS
     Route: 042
     Dates: start: 20060228
  2. FLUDARABINE PHOSPHATE [Suspect]
     Indication: CHRONIC LYMPHOCYTIC LEUKAEMIA
     Dosage: 40 MG, Q4W, INTRAVENOUS
     Route: 042
     Dates: start: 20060228
  3. METHYLPREDNISONE (METHYLPREDNISOLONE) [Concomitant]
  4. DIHYDROCHLORIDE (DIHYDROCODEINE BITARTRATE) [Concomitant]
  5. SULFAMETHOXAZOLE [Concomitant]
  6. TRIMETHOPRIM [Concomitant]
  7. ACYCLOVIR [Concomitant]
  8. MORPHINE [Concomitant]
  9. FAMOTIDINE [Concomitant]
  10. CYCLOPHOSPHAMIDE [Suspect]
     Indication: CHRONIC LYMPHOCYTIC LEUKAEMIA
     Dosage: 400 MG, Q4W, INTRAVENOUS
     Route: 042
     Dates: start: 20060228

REACTIONS (3)
  - CARDIOPULMONARY FAILURE [None]
  - DRUG INEFFECTIVE [None]
  - PYREXIA [None]
